FAERS Safety Report 6806843-9 (Version None)
Quarter: 2010Q2

REPORT INFORMATION
  Report Type: 
  Country: None (occurrence: None)
  Receive Date: 20100629
  Receipt Date: 20080606
  Transmission Date: 20101027
  Serious: No
  Sender: FDA-Public Use
  Company Number: US-PFIZER INC-2008033959

PATIENT
  Sex: Male
  Weight: 88.45 kg

DRUGS (10)
  1. VIAGRA [Suspect]
     Indication: ERECTILE DYSFUNCTION
     Route: 048
     Dates: start: 20071101
  2. METFORMIN HCL [Concomitant]
  3. POTASSIUM CHLORIDE [Concomitant]
  4. GLIPIZIDE [Concomitant]
  5. CARVEDILOL [Concomitant]
  6. LISINOPRIL [Concomitant]
  7. FUROSEMIDE [Concomitant]
  8. AMITRIPTYLINE [Concomitant]
  9. TRAMADOL HCL [Concomitant]
  10. SIMVASTATIN [Concomitant]

REACTIONS (1)
  - DRUG INEFFECTIVE [None]
